FAERS Safety Report 21170983 (Version 12)
Quarter: 2023Q1

REPORT INFORMATION
  Report Type: Report from Study
  Country: US (occurrence: None)
  Receive Date: 20220804
  Receipt Date: 20230321
  Transmission Date: 20230418
  Serious: Yes (Hospitalization)
  Sender: FDA-Public Use
  Company Number: US-ROCHE-3148413

PATIENT
  Age: 80 Year
  Sex: Male
  Weight: 100.1 kg

DRUGS (36)
  1. MOSUNETUZUMAB [Suspect]
     Active Substance: MOSUNETUZUMAB
     Indication: B-cell lymphoma
     Dosage: MOST RECENT DOSE RECEIVED ON 29/JUL/2022 ONCE IN 3 WEEKS
     Route: 058
     Dates: start: 20220722
  2. POLATUZUMAB VEDOTIN [Suspect]
     Active Substance: POLATUZUMAB VEDOTIN
     Indication: B-cell lymphoma
     Route: 042
     Dates: start: 20220722
  3. ACYCLOVIR [Concomitant]
     Active Substance: ACYCLOVIR
     Indication: Non-Hodgkin^s lymphoma
     Route: 048
     Dates: start: 20220503
  4. ACYCLOVIR [Concomitant]
     Active Substance: ACYCLOVIR
     Route: 048
     Dates: start: 20220721, end: 20220725
  5. ASPIRIN [Concomitant]
     Active Substance: ASPIRIN
     Indication: Non-Hodgkin^s lymphoma
     Route: 048
     Dates: start: 20220726
  6. ATORVASTATIN [Concomitant]
     Active Substance: ATORVASTATIN
     Indication: Non-Hodgkin^s lymphoma
     Route: 048
     Dates: start: 20220726
  7. CARVEDILOL [Concomitant]
     Active Substance: CARVEDILOL
     Indication: Non-Hodgkin^s lymphoma
     Route: 048
     Dates: start: 20220725
  8. GABAPENTIN [Concomitant]
     Active Substance: GABAPENTIN
     Indication: Non-Hodgkin^s lymphoma
     Route: 048
     Dates: start: 20220722, end: 20220725
  9. GABAPENTIN [Concomitant]
     Active Substance: GABAPENTIN
     Route: 048
     Dates: start: 20220721, end: 20220721
  10. ACETAMINOPHEN\HYDROCODONE [Concomitant]
     Active Substance: ACETAMINOPHEN\HYDROCODONE
     Indication: Non-Hodgkin^s lymphoma
     Dosage: 1 TABLET
     Route: 048
     Dates: start: 20220726
  11. LISINOPRIL [Concomitant]
     Active Substance: LISINOPRIL
     Indication: Non-Hodgkin^s lymphoma
     Route: 048
     Dates: start: 20220608
  12. LISINOPRIL [Concomitant]
     Active Substance: LISINOPRIL
     Route: 048
     Dates: start: 20220721, end: 20220725
  13. ESCITALOPRAM OXALATE [Concomitant]
     Active Substance: ESCITALOPRAM OXALATE
     Route: 048
  14. OMEPRAZOLE [Concomitant]
     Active Substance: OMEPRAZOLE
     Route: 048
  15. PEPCID [Concomitant]
     Active Substance: FAMOTIDINE
     Route: 042
     Dates: start: 20220722, end: 20220722
  16. DEMEROL [Concomitant]
     Active Substance: MEPERIDINE HYDROCHLORIDE
     Route: 030
     Dates: start: 20220722, end: 20220723
  17. ACETAMINOPHEN [Concomitant]
     Active Substance: ACETAMINOPHEN
     Indication: Prophylaxis
     Route: 048
     Dates: start: 20220722, end: 20220722
  18. ACETAMINOPHEN [Concomitant]
     Active Substance: ACETAMINOPHEN
     Route: 048
     Dates: start: 20220723, end: 20220723
  19. ALBUTEROL [Concomitant]
     Active Substance: ALBUTEROL
     Route: 055
     Dates: start: 20220723, end: 20220724
  20. ASPIRIN [Concomitant]
     Active Substance: ASPIRIN
     Route: 048
     Dates: start: 20220724, end: 20220724
  21. LOVENOX [Concomitant]
     Active Substance: ENOXAPARIN SODIUM
     Route: 058
     Dates: start: 20220724, end: 20220724
  22. DECADRON [Concomitant]
     Active Substance: DEXAMETHASONE
     Route: 042
     Dates: start: 20220722, end: 20220722
  23. DEXTROSE [Concomitant]
     Active Substance: DEXTROSE
     Route: 042
     Dates: start: 20220722, end: 20220722
  24. BENADRYL [Concomitant]
     Active Substance: DIPHENHYDRAMINE HYDROCHLORIDE
     Route: 048
     Dates: start: 20220722, end: 20220722
  25. ALLOPURINOL [Concomitant]
     Active Substance: ALLOPURINOL
     Route: 048
     Dates: start: 20220723
  26. CARVEDILOL [Concomitant]
     Active Substance: CARVEDILOL
     Dates: start: 20220725
  27. APRESOLINE HYDROCHLORIDE [Concomitant]
     Active Substance: HYDRALAZINE HYDROCHLORIDE
     Route: 042
     Dates: start: 20220723, end: 20220723
  28. OMNIPAQUE [Concomitant]
     Active Substance: IOHEXOL
     Route: 048
     Dates: start: 20220720, end: 20220720
  29. ISOVUE 370 [Concomitant]
     Active Substance: IOPAMIDOL
     Route: 042
     Dates: start: 20220720, end: 20220720
  30. ATROVENT [Concomitant]
     Active Substance: IPRATROPIUM BROMIDE
     Route: 055
     Dates: start: 20220723, end: 20220725
  31. MAGNESIUM SULFATE [Concomitant]
     Active Substance: MAGNESIUM SULFATE
     Route: 042
     Dates: start: 20220724, end: 20220724
  32. BYSTOLIC [Concomitant]
     Active Substance: NEBIVOLOL HYDROCHLORIDE
     Route: 048
     Dates: start: 20220723, end: 20220723
  33. F-18 FDG [Concomitant]
     Route: 042
     Dates: start: 20220720, end: 20220720
  34. PANTOPRAZOLE [Concomitant]
     Active Substance: PANTOPRAZOLE
     Route: 048
     Dates: start: 20220722, end: 20220725
  35. SODIUM CHLORIDE [Concomitant]
     Active Substance: SODIUM CHLORIDE
     Route: 042
     Dates: start: 20220721, end: 20220725
  36. SULFAMETHOXAZOLE\TRIMETHOPRIM [Concomitant]
     Active Substance: SULFAMETHOXAZOLE\TRIMETHOPRIM
     Route: 048
     Dates: start: 20220723, end: 20220724

REACTIONS (1)
  - Cytokine release syndrome [Recovered/Resolved]

NARRATIVE: CASE EVENT DATE: 20220723
